FAERS Safety Report 18228598 (Version 1)
Quarter: 2020Q3

REPORT INFORMATION
  Report Type: Spontaneous
  Country: GB (occurrence: GB)
  Receive Date: 20200903
  Receipt Date: 20200903
  Transmission Date: 20201103
  Serious: Yes (Other)
  Sender: FDA-Public Use
  Company Number: GB-TEVA-2020-GB-1821806

PATIENT
  Age: 74 Year
  Sex: Female
  Weight: 57 kg

DRUGS (22)
  1. LORAZEPAM. [Concomitant]
     Active Substance: LORAZEPAM
     Dosage: 2 DF
     Dates: start: 20191021
  2. TRIMETHOPRIM. [Concomitant]
     Active Substance: TRIMETHOPRIM
     Dosage: 2 DF
     Dates: start: 20200731
  3. FERROUS SULFATE. [Concomitant]
     Active Substance: FERROUS SULFATE
     Dosage: 1 DF
     Dates: start: 20191021
  4. QVAR [Concomitant]
     Active Substance: BECLOMETHASONE DIPROPIONATE
     Dosage: PUFFS UNIT DOSE: 4DF
     Dates: start: 20191021
  5. ACICLOVIR [Concomitant]
     Active Substance: ACYCLOVIR
     Dosage: 5 DF
     Dates: start: 20200612, end: 20200619
  6. LAXIDO [Concomitant]
     Active Substance: POLYETHYLENE GLYCOL 3350\POTASSIUM CHLORIDE\SODIUM BICARBONATE\SODIUM CHLORIDE
     Indication: CONSTIPATION
     Dosage: USE 1?2
     Dates: start: 20190415
  7. ACETYLSALICYLIC ACID [Concomitant]
     Active Substance: ASPIRIN
     Dosage: USE AS DIRECTED
     Dates: start: 20191021
  8. NITROFURANTOIN. [Suspect]
     Active Substance: NITROFURANTOIN
     Dosage: 200 MG
     Dates: start: 20200729
  9. CYANOCOBALAMIN. [Concomitant]
     Active Substance: CYANOCOBALAMIN
     Dosage: 1 DF
     Dates: start: 20191021
  10. AMLODIPINE [Concomitant]
     Active Substance: AMLODIPINE BESYLATE
     Dosage: 1 DF
     Dates: start: 20191021
  11. FOLIC ACID. [Concomitant]
     Active Substance: FOLIC ACID
     Dosage: 1 DF
     Dates: start: 20200106
  12. HYOSCINE BUTYLBROMIDE [Concomitant]
     Active Substance: BUTYLSCOPOLAMINE BROMIDE
     Dosage: 8 DOSAGE FORMS DAILY; FOUR TIMES A DAY
     Dates: start: 20200204
  13. SALAMOL [Concomitant]
     Active Substance: ALBUTEROL
     Dosage: 2 DF
     Route: 055
     Dates: start: 20191021
  14. BUDESONIDE. [Concomitant]
     Active Substance: BUDESONIDE
     Dosage: 1 DOSAGE FORMS DAILY; MORNING
     Dates: start: 20191021
  15. OMEPRAZOLE. [Concomitant]
     Active Substance: OMEPRAZOLE
     Dosage: UNIT DOSE: 2 DF
     Dates: start: 20191021
  16. PAROXETINE. [Concomitant]
     Active Substance: PAROXETINE
     Dosage: 2 DF
     Dates: start: 20191021
  17. ASACOL [Concomitant]
     Active Substance: MESALAMINE
     Dosage: 8 DF
     Dates: start: 20191021
  18. TRAVOPROST. [Concomitant]
     Active Substance: TRAVOPROST
     Indication: EYE DISORDER
     Dosage: 2 GTT DAILY; AT NIGHT IN THE AFFECTED EYES
     Dates: start: 20191021
  19. FLUTICASONE FUROATE [Concomitant]
     Active Substance: FLUTICASONE FUROATE
     Dosage: TWO SPRAY ACTUATIONS IN EACH NOSTRIL, UNIT DOSE: 4DF
     Route: 045
     Dates: start: 20200629, end: 20200630
  20. ANUSOL NOS [Concomitant]
     Active Substance: BALSAM PERU\BENZYL BENZOATE\BISMUTH HYDROXIDE\BISMUTH SUBGALLATE\HYDROCORTISONE ACETATE\ZINC OXIDE
     Dosage: 2 DF
     Dates: start: 20191021
  21. PARACETAMOL [Concomitant]
     Active Substance: ACETAMINOPHEN
     Dosage: ONE TO TWO TO BE TAKEN FOUR TIMES A DAY
     Dates: start: 20191021
  22. OTOMIZE [Concomitant]
     Active Substance: DEXAMETHASONE\NEOMYCIN SULFATE
     Dosage: UNIT DOSE: 3 GTT TO THE AFFECT...
     Dates: start: 20200629, end: 20200706

REACTIONS (1)
  - Swollen tongue [Recovered/Resolved]

NARRATIVE: CASE EVENT DATE: 20200731
